FAERS Safety Report 8906444 (Version 1)
Quarter: 2012Q4

REPORT INFORMATION
  Report Type: Spontaneous
  Country: US (occurrence: None)
  Receive Date: 20121108
  Receipt Date: 20121108
  Transmission Date: 20130627
  Serious: Yes (Hospitalization, Other)
  Sender: FDA-Public Use
  Company Number: ADR-2012-02034

PATIENT
  Sex: Male

DRUGS (1)
  1. LIORESAL [Suspect]
     Indication: SPASTICITY

REACTIONS (6)
  - Underdose [None]
  - Musculoskeletal stiffness [None]
  - Tremor [None]
  - Abdominal pain upper [None]
  - Superior mesenteric artery syndrome [None]
  - Joint dislocation [None]
